FAERS Safety Report 4824882-4 (Version None)
Quarter: 2005Q4

REPORT INFORMATION
  Report Type: 
  Country: None (occurrence: None)
  Receive Date: 20051110
  Receipt Date: 20051103
  Transmission Date: 20060501
  Serious: Yes (Life-Threatening, Hospitalization)
  Sender: FDA-Public Use
  Company Number: DEPFP-S-20050030-V001

PATIENT
  Sex: Male

DRUGS (2)
  1. NAVELBINE [Suspect]
     Indication: NON-SMALL CELL LUNG CANCER
     Route: 042
     Dates: start: 20050701
  2. CISPLATIN [Suspect]
     Indication: NON-SMALL CELL LUNG CANCER
     Route: 042
     Dates: start: 20050701

REACTIONS (4)
  - ACUTE RESPIRATORY DISTRESS SYNDROME [None]
  - COMA [None]
  - HEARING IMPAIRED [None]
  - SEPSIS [None]
